FAERS Safety Report 4979662-6 (Version None)
Quarter: 2006Q2

REPORT INFORMATION
  Report Type: 
  Country: None (occurrence: None)
  Receive Date: 20060421
  Receipt Date: 20060413
  Transmission Date: 20061013
  Serious: Yes (Life-Threatening, Hospitalization)
  Sender: FDA-Public Use
  Company Number: DE-JNJFOC-20060404068

PATIENT
  Sex: Male

DRUGS (5)
  1. SERENACE [Suspect]
  2. AKINETON [Suspect]
  3. CHLORPROMAZINE [Suspect]
  4. NITRAZEPAM [Suspect]
  5. PROMETHAZINE [Suspect]

REACTIONS (12)
  - APGAR SCORE LOW [None]
  - ATTENTION DEFICIT/HYPERACTIVITY DISORDER [None]
  - COMPLICATIONS OF MATERNAL EXPOSURE TO THERAPEUTIC DRUGS [None]
  - CYST [None]
  - DECREASED ACTIVITY [None]
  - EXCITABILITY [None]
  - HYPOTONIA NEONATAL [None]
  - IRRITABILITY [None]
  - OPISTHOTONUS [None]
  - PREMATURE BABY [None]
  - THROMBOCYTHAEMIA [None]
  - TREMOR NEONATAL [None]
